FAERS Safety Report 6066321-4 (Version None)
Quarter: 2009Q1

REPORT INFORMATION
  Report Type: 
  Country: None (occurrence: None)
  Receive Date: 20090205
  Receipt Date: 20090105
  Transmission Date: 20090719
  Serious: No
  Sender: FDA-Public Use
  Company Number: US-BAYER-200910249NA

PATIENT
  Age: 20 Year
  Sex: Female

DRUGS (2)
  1. YAZ [Suspect]
     Indication: CONTRACEPTION
     Route: 048
     Dates: start: 20071101, end: 20080601
  2. YAZ [Suspect]
     Route: 048
     Dates: start: 20080801

REACTIONS (3)
  - ABNORMAL WITHDRAWAL BLEEDING [None]
  - DEPRESSION [None]
  - MOOD SWINGS [None]
